FAERS Safety Report 8512390-9 (Version None)
Quarter: 2012Q3

REPORT INFORMATION
  Report Type: 
  Country: None (occurrence: None)
  Receive Date: 20120716
  Receipt Date: 20120712
  Transmission Date: 20120928
  Serious: Yes (Disabling)
  Sender: FDA-Public Use
  Company Number: PHHY2012AU058129

PATIENT
  Sex: Female

DRUGS (1)
  1. ZOLEDRONOC ACID [Suspect]
     Dosage: 5 MG, UNK
     Route: 042
     Dates: start: 20100603

REACTIONS (5)
  - POOR VENOUS ACCESS [None]
  - MULTIPLE INJURIES [None]
  - LIMB TRAUMATIC AMPUTATION [None]
  - DEVICE DIFFICULT TO USE [None]
  - ROAD TRAFFIC ACCIDENT [None]
